FAERS Safety Report 9348323 (Version 2)
Quarter: 2013Q3

REPORT INFORMATION
  Report Type: Spontaneous
  Country: US (occurrence: US)
  Receive Date: 20130614
  Receipt Date: 20130725
  Transmission Date: 20140515
  Serious: Yes (Hospitalization, Other)
  Sender: FDA-Public Use
  Company Number: US-009507513-1306USA003758

PATIENT
  Age: 52 Year
  Sex: Male

DRUGS (6)
  1. VICTRELIS [Suspect]
     Indication: HEPATITIS C
     Dosage: 800 MG, THREE TIMES DAILY
     Route: 048
     Dates: start: 20121126, end: 20130604
  2. VICTRELIS [Suspect]
     Dosage: 800 MG, THREE TIMES DAILY
     Route: 048
     Dates: start: 2013
  3. REBETOL [Suspect]
     Dosage: UNK
     Dates: end: 20130604
  4. REBETOL [Suspect]
     Dosage: UNK
     Route: 048
     Dates: start: 2013
  5. PEGASYS [Suspect]
     Dosage: UNK
     Dates: end: 20130604
  6. PEGASYS [Suspect]
     Dosage: UNK
     Dates: start: 2013

REACTIONS (5)
  - Renal failure acute [Unknown]
  - Septic shock [Unknown]
  - Sepsis [Unknown]
  - Cellulitis [Unknown]
  - Anaemia [Unknown]
